FAERS Safety Report 6624231-5 (Version None)
Quarter: 2010Q1

REPORT INFORMATION
  Report Type: 
  Country: None (occurrence: None)
  Receive Date: 20100310
  Receipt Date: 20091103
  Transmission Date: 20100710
  Serious: No
  Sender: FDA-Public Use
  Company Number: US-BIOGENIDEC-2009BI035433

PATIENT
  Sex: Male

DRUGS (2)
  1. AVONEX [Suspect]
     Indication: MULTIPLE SCLEROSIS
     Route: 030
  2. AVONEX [Suspect]
     Route: 030
     Dates: start: 20080101, end: 20090601

REACTIONS (7)
  - ABASIA [None]
  - CONSTIPATION [None]
  - DIPLOPIA [None]
  - DYSSTASIA [None]
  - HYPERTENSION [None]
  - MULTIPLE SCLEROSIS [None]
  - PARALYSIS [None]
